FAERS Safety Report 14553352 (Version 1)
Quarter: 2018Q1

REPORT INFORMATION
  Report Type: Spontaneous
  Country: FR (occurrence: FR)
  Receive Date: 20180220
  Receipt Date: 20180220
  Transmission Date: 20180509
  Serious: Yes (Hospitalization)
  Sender: FDA-Public Use
  Company Number: FR-009507513-1802FRA006659

PATIENT
  Age: 74 Year
  Sex: Male
  Weight: 57 kg

DRUGS (2)
  1. KEYTRUDA [Suspect]
     Active Substance: PEMBROLIZUMAB
     Indication: SQUAMOUS CELL CARCINOMA
     Dosage: 200 MG, CYCLICAL
     Route: 042
     Dates: start: 20180129, end: 20180129
  2. AUGMENTIN [Suspect]
     Active Substance: AMOXICILLIN\CLAVULANATE POTASSIUM
     Indication: LUNG DISORDER
     Dosage: NOT SPECIFIED
     Route: 048
     Dates: start: 20180115

REACTIONS (1)
  - Urticaria [Recovering/Resolving]

NARRATIVE: CASE EVENT DATE: 20180129
